FAERS Safety Report 7720726-1 (Version None)
Quarter: 2011Q3

REPORT INFORMATION
  Report Type: 
  Country: None (occurrence: None)
  Receive Date: 20110831
  Receipt Date: 20110822
  Transmission Date: 20111222
  Serious: Yes (Life-Threatening, Hospitalization, Other)
  Sender: FDA-Public Use
  Company Number: US-TYCO HEALTHCARE/MALLINCKRODT-T201101618

PATIENT
  Sex: Male

DRUGS (22)
  1. OPTIRAY 160 [Suspect]
     Indication: COMPUTERISED TOMOGRAM
     Dosage: 125 ML, SINGLE
     Route: 042
     Dates: start: 20110817, end: 20110817
  2. DILAUDID [Concomitant]
     Dosage: 4 MG, QID
     Route: 048
  3. CARVEDILOL [Concomitant]
     Dosage: 25 MG, BID
     Route: 048
  4. METFORMIN [Concomitant]
     Dosage: 500 MG, UNK
     Route: 048
  5. VALIUM [Concomitant]
     Dosage: 2.5 MG, TID
     Route: 048
  6. LOVAZA [Concomitant]
     Dosage: 1 G, UNK
     Route: 048
  7. RAMIPRIL [Concomitant]
     Dosage: 10 MG, BID
     Route: 048
  8. SPIRIVA [Concomitant]
     Dosage: 18 MCG, BID
  9. CARBOPLATIN [Concomitant]
     Indication: CHEMOTHERAPY
     Dosage: UNK
  10. CLINDAMYCIN [Concomitant]
     Dosage: 1% TOPICAL GEL AS DIRECTED BID
     Route: 061
  11. COLACE [Concomitant]
     Dosage: 100 MG, UNK
     Route: 048
  12. PROMETHAZINE [Concomitant]
     Dosage: 25 MG, QID
     Route: 048
  13. ETOPOSIDE [Concomitant]
     Indication: CHEMOTHERAPY
     Dosage: UNK
  14. DEXAMETHASONE [Concomitant]
     Dosage: 20 MG AS DIRECTED THE NIGHT BEFORE AND MORNING OF CHEMO
     Route: 048
  15. XOPENEX [Concomitant]
     Dosage: 1.25 MG/3 ML NEB SOLUTION Q6H
  16. DOXYCYCLINE [Concomitant]
     Dosage: 100 MG, BID
     Route: 048
  17. GLYCOLAX [Concomitant]
     Indication: CONSTIPATION
     Dosage: 17 G, QD
     Route: 048
  18. ANTIBIOTICS [Concomitant]
     Indication: CHRONIC OBSTRUCTIVE PULMONARY DISEASE
     Dosage: UNK
  19. AMLODIPINE [Concomitant]
     Dosage: 5 MG, UNK
     Route: 048
  20. LUNESTA [Concomitant]
     Dosage: 3 MG AT BEDTIME
     Route: 048
  21. MAGNESIUM CITRATE [Concomitant]
     Indication: CONSTIPATION
     Dosage: ONE BOTTLE AS NEEDED
     Route: 048
  22. PLAVIX [Concomitant]
     Dosage: 75 MG, UNK
     Route: 048

REACTIONS (3)
  - CHEST PAIN [None]
  - RESPIRATORY ARREST [None]
  - LOSS OF CONSCIOUSNESS [None]
